FAERS Safety Report 9979508 (Version 2)
Quarter: 2014Q1

REPORT INFORMATION
  Report Type: Report from Study
  Country: US (occurrence: US)
  Receive Date: 20140306
  Receipt Date: 20140306
  Transmission Date: 20141002
  Serious: No
  Sender: FDA-Public Use
  Company Number: US-ABBVIE-13P-163-1157038-00

PATIENT
  Age: 60 Year
  Sex: Male

DRUGS (11)
  1. HUMIRA [Suspect]
     Indication: PSORIATIC ARTHROPATHY
     Dates: start: 20130822
  2. METFORMIN [Concomitant]
     Indication: PRODUCT USED FOR UNKNOWN INDICATION
  3. SYNTHYROID [Concomitant]
     Indication: HYPOTHYROIDISM
  4. COZAAR [Concomitant]
     Indication: HYPERTENSION
  5. HYDROCHLOROTHIAZIDE [Concomitant]
     Indication: HYPERTENSION
  6. PRAVASTATIN [Concomitant]
     Indication: BLOOD CHOLESTEROL
  7. PREVACID [Concomitant]
     Indication: GASTROOESOPHAGEAL REFLUX DISEASE
  8. PROZAC [Concomitant]
     Indication: DEPRESSION
  9. ASA [Concomitant]
     Indication: PRODUCT USED FOR UNKNOWN INDICATION
  10. VITAMIN E [Concomitant]
     Indication: NEUROPATHY PERIPHERAL
  11. UNKNOWN MEDICATION [Concomitant]
     Indication: NEUROPATHY PERIPHERAL

REACTIONS (4)
  - Arthralgia [Not Recovered/Not Resolved]
  - Drug ineffective [Not Recovered/Not Resolved]
  - Local swelling [Not Recovered/Not Resolved]
  - Skin tightness [Not Recovered/Not Resolved]
